FAERS Safety Report 9373251 (Version 1)
Quarter: 2013Q2

REPORT INFORMATION
  Report Type: Spontaneous
  Country: CA (occurrence: CA)
  Receive Date: 20130627
  Receipt Date: 20130627
  Transmission Date: 20140414
  Serious: Yes (Life-Threatening, Other)
  Sender: FDA-Public Use
  Company Number: CA-GLAXOSMITHKLINE-A1027056A

PATIENT
  Sex: Female
  Weight: 67.5 kg

DRUGS (2)
  1. ADVAIR [Suspect]
     Indication: ASTHMA
     Dosage: 2PUFF TWICE PER DAY
     Route: 055
     Dates: start: 20130512, end: 20130513
  2. CEFUROXIME [Concomitant]
     Indication: UPPER RESPIRATORY TRACT INFECTION
     Dosage: 500MG TWICE PER DAY
     Dates: start: 20130512, end: 20130513

REACTIONS (3)
  - Heart rate decreased [Recovered/Resolved]
  - Syncope [Recovered/Resolved]
  - Muscle spasms [Recovered/Resolved]
